FAERS Safety Report 7955248-6 (Version None)
Quarter: 2011Q4

REPORT INFORMATION
  Report Type: 
  Country: None (occurrence: None)
  Receive Date: 20111202
  Receipt Date: 20111130
  Transmission Date: 20120403
  Serious: Yes (Death)
  Sender: FDA-Public Use
  Company Number: FR-BRISTOL-MYERS SQUIBB COMPANY-16262438

PATIENT
  Age: 43 Year
  Sex: Female

DRUGS (5)
  1. TETANUS TOXOID [Suspect]
     Dates: start: 20111003
  2. TRANXENE [Suspect]
     Indication: RESTLESSNESS
     Dates: start: 20111002
  3. ABILIFY [Suspect]
     Indication: BIPOLAR DISORDER
     Dosage: INTERRUPTED ON 2011;REST ON 02OCT2011.
  4. TERCIAN [Suspect]
     Indication: BIPOLAR DISORDER
     Dosage: INTERRUPTED ON 2011;REST ON 02OCT2011. 1DF:1TAB TERCIAN 25MG
  5. DEPAKOTE [Suspect]
     Indication: RESTLESSNESS
     Dosage: 1DF:1 TAB DEPAKOTE 500 MG
     Dates: start: 20111002

REACTIONS (1)
  - CARDIO-RESPIRATORY ARREST [None]
